FAERS Safety Report 4978168-8 (Version None)
Quarter: 2006Q2

REPORT INFORMATION
  Report Type: 
  Country: None (occurrence: None)
  Receive Date: 20060420
  Receipt Date: 20060410
  Transmission Date: 20061013
  Serious: Yes (Hospitalization)
  Sender: FDA-Public Use
  Company Number: US-ROCHE-444024

PATIENT
  Age: 79 Year
  Sex: Male
  Weight: 107.7 kg

DRUGS (3)
  1. NAPROXEN [Suspect]
     Indication: ARTHRITIS
     Route: 048
  2. ASPIRIN [Suspect]
     Indication: PROPHYLAXIS
     Route: 048
  3. STUDY MEDICATION [Suspect]
     Indication: BENIGN PROSTATIC HYPERPLASIA
     Dosage: STOPPED ON 04 AND RESTARTED ON 09 NOVEMBER 2005.
     Route: 048
     Dates: start: 20050322

REACTIONS (2)
  - DIVERTICULITIS [None]
  - RECTAL HAEMORRHAGE [None]
